FAERS Safety Report 15454070 (Version 1)
Quarter: 2018Q4

REPORT INFORMATION
  Report Type: Spontaneous
  Country: US (occurrence: US)
  Receive Date: 20181002
  Receipt Date: 20181002
  Transmission Date: 20190204
  Serious: No
  Sender: FDA-Public Use
  Company Number: US-TORRENT-00006207

PATIENT
  Age: 65 Year
  Sex: Male
  Weight: 102 kg

DRUGS (4)
  1. ZOLPIDEM [Concomitant]
     Active Substance: ZOLPIDEM\ZOLPIDEM TARTRATE
     Indication: SLEEP DISORDER
     Dosage: 2 TO 3 YEARS
  2. LISINOPRIL. [Concomitant]
     Active Substance: LISINOPRIL
     Indication: HYPERTENSION
     Dosage: OD
  3. ZOLPIDEM TARTRATE. [Suspect]
     Active Substance: ZOLPIDEM TARTRATE
     Indication: SLEEP DISORDER
     Dosage: OD, ZOLPIDEM TARTRATE 10 MG TABLET BEFORE GOING TO BED
     Route: 048
     Dates: start: 20180423, end: 20180425
  4. ATORVASTATIN [Concomitant]
     Active Substance: ATORVASTATIN
     Indication: BLOOD CHOLESTEROL
     Dosage: OD

REACTIONS (6)
  - Restless legs syndrome [Unknown]
  - Drug ineffective [Unknown]
  - Restlessness [Unknown]
  - Arthralgia [Unknown]
  - Product substitution issue [Unknown]
  - Agitation [Unknown]

NARRATIVE: CASE EVENT DATE: 20180423
